FAERS Safety Report 5818863-1 (Version None)
Quarter: 2008Q3

REPORT INFORMATION
  Report Type: 
  Country: None (occurrence: None)
  Receive Date: 20080718
  Receipt Date: 20080710
  Transmission Date: 20090109
  Serious: Yes (Hospitalization, Other)
  Sender: FDA-Public Use
  Company Number: 163-21880-08060539

PATIENT
  Age: 60 Year
  Sex: Female

DRUGS (15)
  1. REVLIMID [Suspect]
     Indication: MYELODYSPLASTIC SYNDROME
     Dosage: 10 MG, 1 IN 1 D, ORAL ; 5 MG, 1 IN 1 D, ORAL
     Route: 048
     Dates: start: 20080205, end: 20080220
  2. REVLIMID [Suspect]
     Indication: MYELODYSPLASTIC SYNDROME
     Dosage: 10 MG, 1 IN 1 D, ORAL ; 5 MG, 1 IN 1 D, ORAL
     Route: 048
     Dates: start: 20080306
  3. PROCRIT [Concomitant]
  4. ARANESP 9DARBEPOETIN ALFA) [Concomitant]
  5. ASPIRIN [Concomitant]
  6. INSULIN (INSULIN) [Concomitant]
  7. LIPITOR [Concomitant]
  8. FUROSEMIDE [Concomitant]
  9. HYDRALAZINE HCL [Concomitant]
  10. COZAAR [Concomitant]
  11. LEVOTHYROXINE SODIUM [Concomitant]
  12. TOPROL-XL [Concomitant]
  13. COLACE (DOCUSATE SODIUM) [Concomitant]
  14. IRON (IRON) [Concomitant]
  15. CALCIUM (CALCIUM) [Concomitant]

REACTIONS (18)
  - ABDOMINAL DISTENSION [None]
  - ANAEMIA [None]
  - ARTERIOVENOUS MALFORMATION [None]
  - CARDIAC FAILURE CONGESTIVE [None]
  - CEREBRAL INFARCTION [None]
  - CHEST PAIN [None]
  - DECREASED APPETITE [None]
  - DIARRHOEA [None]
  - DIVERTICULITIS [None]
  - EPISTAXIS [None]
  - FLUID OVERLOAD [None]
  - FLUID RETENTION [None]
  - GASTROINTESTINAL HAEMORRHAGE [None]
  - NAUSEA [None]
  - PLATELET COUNT DECREASED [None]
  - PULMONARY HYPERTENSION [None]
  - TRICUSPID VALVE INCOMPETENCE [None]
  - VOMITING [None]
